FAERS Safety Report 10339997 (Version 1)
Quarter: 2014Q3

REPORT INFORMATION
  Report Type: Spontaneous
  Country: JP (occurrence: JP)
  Receive Date: 20140724
  Receipt Date: 20140724
  Transmission Date: 20150326
  Serious: Yes (Other)
  Sender: FDA-Public Use
  Company Number: JP-WATSON-2014-16341

PATIENT
  Age: 49 Year
  Sex: Male

DRUGS (13)
  1. BIPERIDEN HYDROCHLORIDE [Concomitant]
     Active Substance: BIPERIDEN HYDROCHLORIDE
     Indication: PRODUCT USED FOR UNKNOWN INDICATION
     Dosage: 2 MG, UNKNOWN
     Route: 048
  2. RAPAFLO [Suspect]
     Active Substance: SILODOSIN
     Indication: BENIGN PROSTATIC HYPERPLASIA
     Dosage: UNK, UNKNOWN
     Route: 048
  3. LEVOMEPROMAZINE [Concomitant]
     Active Substance: LEVOMEPROMAZINE
     Indication: SCHIZOAFFECTIVE DISORDER
     Dosage: 400 MG, UNKNOWN
     Route: 048
  4. RISPERIDONE. [Concomitant]
     Active Substance: RISPERIDONE
     Indication: SCHIZOAFFECTIVE DISORDER
     Dosage: 12 MG, UNKNOWN
     Route: 065
  5. LITHIUM CARBONATE. [Concomitant]
     Active Substance: LITHIUM CARBONATE
     Indication: PRODUCT USED FOR UNKNOWN INDICATION
     Dosage: 600 MG, UNKNOWN
     Route: 048
  6. NITRAZEPAM [Concomitant]
     Active Substance: NITRAZEPAM
     Indication: PRODUCT USED FOR UNKNOWN INDICATION
     Dosage: 5 MG, UNKNOWN
     Route: 048
  7. SENNOSIDE                          /00571901/ [Concomitant]
     Active Substance: SENNOSIDE A\SENNOSIDE B\SENNOSIDES
     Indication: PRODUCT USED FOR UNKNOWN INDICATION
     Dosage: 24 MG, UNKNOWN
     Route: 048
  8. VEGETAMIN-A [Concomitant]
     Active Substance: CHLORPROMAZINE\PROMETHAZINE
     Indication: SCHIZOAFFECTIVE DISORDER
     Dosage: 1 DF, UNK
     Route: 048
  9. RAPAFLO [Suspect]
     Active Substance: SILODOSIN
     Dosage: UNK
     Route: 048
  10. MAGNESIUM OXIDE. [Concomitant]
     Active Substance: MAGNESIUM OXIDE
     Indication: PRODUCT USED FOR UNKNOWN INDICATION
     Dosage: 1.5 G, UNKNOWN
     Route: 048
  11. FAMOTIDINE. [Concomitant]
     Active Substance: FAMOTIDINE
     Dosage: 20 MG, UNKNOWN
     Route: 065
  12. HALOPERIDOL. [Concomitant]
     Active Substance: HALOPERIDOL
     Indication: SCHIZOAFFECTIVE DISORDER
     Dosage: 39 MG, UNK
     Route: 065
  13. FAMOTIDINE. [Concomitant]
     Active Substance: FAMOTIDINE
     Indication: PRODUCT USED FOR UNKNOWN INDICATION
     Dosage: 20 MG, UNKNOWN
     Route: 065

REACTIONS (1)
  - Catatonia [Recovered/Resolved]
